FAERS Safety Report 23933638 (Version 1)
Quarter: 2024Q2

REPORT INFORMATION
  Report Type: Spontaneous
  Country: RO (occurrence: None)
  Receive Date: 20240603
  Receipt Date: 20240603
  Transmission Date: 20240716
  Serious: Yes (Other)
  Sender: FDA-Public Use
  Company Number: 2024A128602

PATIENT
  Sex: Male

DRUGS (18)
  1. ROSUVASTATIN [Suspect]
     Active Substance: ROSUVASTATIN
     Indication: Familial hypertriglyceridaemia
     Dosage: 5 MILLIGRAM, 1/DAY
     Route: 048
     Dates: start: 2013
  2. ROSUVASTATIN [Suspect]
     Active Substance: ROSUVASTATIN
     Indication: Dyslipidaemia
     Dosage: 5 MILLIGRAM, 1/DAY
     Route: 048
     Dates: start: 2013
  3. ROSUVASTATIN [Suspect]
     Active Substance: ROSUVASTATIN
     Indication: Familial hypertriglyceridaemia
     Dosage: 20 MILLIGRAM, 1/DAY
     Route: 048
  4. ROSUVASTATIN [Suspect]
     Active Substance: ROSUVASTATIN
     Indication: Dyslipidaemia
     Dosage: 20 MILLIGRAM, 1/DAY
     Route: 048
  5. ROSUVASTATIN [Suspect]
     Active Substance: ROSUVASTATIN
     Indication: Familial hypertriglyceridaemia
     Dosage: 40 MILLIGRAM, 1/DAY
     Route: 048
  6. ROSUVASTATIN [Suspect]
     Active Substance: ROSUVASTATIN
     Indication: Dyslipidaemia
     Dosage: 40 MILLIGRAM, 1/DAY
     Route: 048
  7. FENOFIBRATE [Suspect]
     Active Substance: FENOFIBRATE
     Indication: Familial hypertriglyceridaemia
     Dosage: 160 MILLIGRAM, 0.5/DAY
     Route: 048
  8. FENOFIBRATE [Suspect]
     Active Substance: FENOFIBRATE
     Indication: Familial hypertriglyceridaemia
     Dosage: 160 MILLIGRAM, 1/DAY
     Route: 048
  9. OMEGA-3 FATTY ACIDS [Concomitant]
     Active Substance: OMEGA-3 FATTY ACIDS
     Indication: Familial hypertriglyceridaemia
     Dosage: 1000 MILLIGRAM, 2/DAY
  10. OMEGA-3 FATTY ACIDS [Concomitant]
     Active Substance: OMEGA-3 FATTY ACIDS
     Indication: Familial hypertriglyceridaemia
     Dosage: 1000 MILLIGRAM, 4/DAY
  11. MORPHINE [Concomitant]
     Active Substance: MORPHINE
     Dosage: UNK
  12. UNSPECIFIED INGREDIENT [Concomitant]
     Active Substance: UNSPECIFIED INGREDIENT
     Dosage: UNK
     Dates: start: 2023
  13. UNSPECIFIED INGREDIENT [Concomitant]
     Active Substance: UNSPECIFIED INGREDIENT
     Dosage: 25000 INTERNATIONAL UNIT, 3/DAY
  14. PANTOPRAZOLE [Concomitant]
     Active Substance: PANTOPRAZOLE
     Dosage: 40 MILLIGRAM, 2/DAY
  15. EZETIMIBE [Concomitant]
     Active Substance: EZETIMIBE
     Dosage: UNK
  16. EVOLOCUMAB [Concomitant]
     Active Substance: EVOLOCUMAB
     Dosage: UNK
  17. ALIROCUMAB [Concomitant]
     Active Substance: ALIROCUMAB
     Dosage: UNK
  18. LOMITAPIDE [Concomitant]
     Active Substance: LOMITAPIDE
     Dosage: UNK

REACTIONS (4)
  - Pancreatitis chronic [Unknown]
  - Mitral valve incompetence [Unknown]
  - Psoriasis [Unknown]
  - Adjustment disorder with mixed anxiety and depressed mood [Unknown]

NARRATIVE: CASE EVENT DATE: 20130101
